FAERS Safety Report 7351581-X (Version None)
Quarter: 2011Q1

REPORT INFORMATION
  Report Type: 
  Country: None (occurrence: None)
  Receive Date: 20110314
  Receipt Date: 20110303
  Transmission Date: 20110831
  Serious: Yes (Hospitalization)
  Sender: FDA-Public Use
  Company Number: US-ELI_LILLY_AND_COMPANY-US201002004231

PATIENT
  Sex: Female

DRUGS (13)
  1. NASONEX [Concomitant]
  2. FORTEO [Suspect]
     Dosage: 20 UG, DAILY (1/D)
     Dates: end: 20110220
  3. ACIPHEX [Concomitant]
  4. FORTEO [Suspect]
     Indication: OSTEOPOROSIS
     Dosage: 20 UG, DAILY (1/D)
     Dates: start: 20090220, end: 20100101
  5. FORTEO [Suspect]
     Dosage: 20 UG, DAILY (1/D)
  6. VITAMIN D [Concomitant]
     Dosage: 50000 IU, WEEKLY (1/W)
  7. LEVOTHYROXINE SODIUM [Concomitant]
  8. PREMARIN [Concomitant]
     Indication: ARTHRALGIA
  9. FORTEO [Suspect]
     Dosage: 20 UG, DAILY (1/D)
     Dates: start: 20100101
  10. PROVIGIL [Concomitant]
     Indication: NARCOLEPSY
  11. FORTEO [Suspect]
     Dosage: 20 UG, DAILY (1/D)
  12. VITAMIN D [Concomitant]
     Dosage: 3000 IU, DAILY (1/D)
  13. VIVELLE-DOT [Concomitant]

REACTIONS (34)
  - MEDICATION ERROR [None]
  - HYPERSENSITIVITY [None]
  - DEPRESSION [None]
  - KNEE ARTHROPLASTY [None]
  - SKIN DISORDER [None]
  - MUSCULAR WEAKNESS [None]
  - RHINORRHOEA [None]
  - BONE PAIN [None]
  - ASTHENIA [None]
  - OEDEMA PERIPHERAL [None]
  - NARCOLEPSY [None]
  - ARTHRALGIA [None]
  - DYSPNOEA [None]
  - MUSCLE SPASMS [None]
  - VITAMIN D DEFICIENCY [None]
  - BALANCE DISORDER [None]
  - SKIN INJURY [None]
  - MUSCLE ATROPHY [None]
  - JOINT INJURY [None]
  - HERPES ZOSTER [None]
  - ONYCHOCLASIS [None]
  - SKIN WRINKLING [None]
  - DEVICE MISUSE [None]
  - PAIN IN EXTREMITY [None]
  - DENTAL DISCOMFORT [None]
  - ANXIETY [None]
  - HYPERSOMNIA [None]
  - DYSPHONIA [None]
  - TENDON RUPTURE [None]
  - GAIT DISTURBANCE [None]
  - FALL [None]
  - PAIN [None]
  - DIZZINESS [None]
  - COUGH [None]
